FAERS Safety Report 10742814 (Version 2)
Quarter: 2015Q2

REPORT INFORMATION
  Report Type: Report from Study
  Country: JP (occurrence: JP)
  Receive Date: 20150127
  Receipt Date: 20150422
  Transmission Date: 20150821
  Serious: Yes (Hospitalization, Other)
  Sender: FDA-Public Use
  Company Number: JP-GILEAD-2015-0133158

PATIENT
  Age: 76 Year
  Sex: Female

DRUGS (27)
  1. AMBRISENTAN [Suspect]
     Active Substance: AMBRISENTAN
     Indication: PULMONARY HYPERTENSION
     Dosage: 2.5 MG, BID
     Route: 048
     Dates: start: 20110416, end: 20110419
  2. SOL-MELCORT [Suspect]
     Active Substance: METHYLPREDNISOLONE SODIUM SUCCINATE
     Dosage: UNK
     Route: 042
     Dates: start: 20130827, end: 20130827
  3. BERAPROST SODIUM [Concomitant]
     Active Substance: BERAPROST SODIUM
     Indication: PULMONARY HYPERTENSION
     Dosage: UNK
     Dates: end: 20130912
  4. BERAPROST SODIUM [Concomitant]
     Active Substance: BERAPROST SODIUM
     Indication: PULMONARY HYPERTENSION
     Dosage: UNK
     Dates: start: 20130913
  5. SELECTOL [Concomitant]
     Active Substance: CELIPROLOL
     Dosage: UNK
  6. DIOVAN [Concomitant]
     Active Substance: VALSARTAN
     Dosage: UNK
     Dates: end: 20140227
  7. BERAPROST SODIUM [Concomitant]
     Active Substance: BERAPROST SODIUM
     Dosage: UNK
     Dates: end: 20130912
  8. AMLODIPINE [Concomitant]
     Active Substance: AMLODIPINE BESYLATE
     Dosage: UNK
     Dates: end: 20130812
  9. AMBRISENTAN [Suspect]
     Active Substance: AMBRISENTAN
     Dosage: UNK UNK, BID
     Route: 048
     Dates: start: 20140225, end: 20140225
  10. SOL-MELCORT [Suspect]
     Active Substance: METHYLPREDNISOLONE SODIUM SUCCINATE
     Dosage: UNK
     Route: 042
     Dates: start: 20130903, end: 20130903
  11. TAKEPRON [Concomitant]
     Active Substance: LANSOPRAZOLE
     Indication: GASTRITIS PROPHYLAXIS
     Dosage: UNK
  12. ETISEDAN [Concomitant]
     Active Substance: ETIZOLAM
     Dosage: UNK
     Dates: end: 20130812
  13. FUROSEMIDE. [Concomitant]
     Active Substance: FUROSEMIDE
     Dosage: UNK
     Dates: end: 20140221
  14. CEFAZOLIN SODIUM. [Concomitant]
     Active Substance: CEFAZOLIN SODIUM
     Indication: PROPHYLAXIS
     Dosage: UNK
     Dates: start: 20140218, end: 20140219
  15. DILTIAZEM HYDROCHLORIDE. [Concomitant]
     Active Substance: DILTIAZEM HYDROCHLORIDE
     Dosage: UNK
     Dates: end: 20140223
  16. WARFARIN [Concomitant]
     Active Substance: WARFARIN
     Indication: THROMBOSIS PROPHYLAXIS
     Dosage: UNK
  17. DOGMATYL [Concomitant]
     Active Substance: SULPIRIDE
     Dosage: UNK
  18. SILECE [Concomitant]
     Active Substance: FLUNITRAZEPAM
     Dosage: UNK
  19. RASENAZOLIN [Concomitant]
     Active Substance: CEFAZOLIN SODIUM
     Indication: PROPHYLAXIS
     Dosage: UNK
     Dates: start: 20130820, end: 20130821
  20. AMBRISENTAN [Suspect]
     Active Substance: AMBRISENTAN
     Dosage: 5 MG, BID
     Route: 048
     Dates: start: 20110421, end: 20140224
  21. SOL-MELCORT [Suspect]
     Active Substance: METHYLPREDNISOLONE SODIUM SUCCINATE
     Indication: PULMONARY ARTERY THERAPEUTIC PROCEDURE
     Dosage: UNK
     Route: 042
     Dates: start: 20130820, end: 20130821
  22. ELASPOL [Concomitant]
     Active Substance: SIVELESTAT SODIUM
     Indication: PULMONARY ARTERY THERAPEUTIC PROCEDURE
     Dosage: UNK
     Dates: start: 20130820, end: 20130821
  23. ELASPOL [Concomitant]
     Active Substance: SIVELESTAT SODIUM
     Dosage: UNK
     Dates: start: 20130827, end: 20130827
  24. AMBRISENTAN [Suspect]
     Active Substance: AMBRISENTAN
     Dosage: 2.5 MG, TID
     Route: 048
     Dates: start: 20110420, end: 20110420
  25. AMBRISENTAN [Suspect]
     Active Substance: AMBRISENTAN
     Dosage: 2.5 MG, BID
     Route: 048
     Dates: start: 20140226
  26. ALFAROL [Concomitant]
     Active Substance: ALFACALCIDOL
     Dosage: UNK
  27. RASENAZOLIN [Concomitant]
     Active Substance: CEFAZOLIN SODIUM
     Indication: PULMONARY ARTERY THERAPEUTIC PROCEDURE
     Dosage: UNK
     Dates: start: 20130827, end: 20130827

REACTIONS (4)
  - Drug hypersensitivity [Recovered/Resolved]
  - Anaemia [Not Recovered/Not Resolved]
  - Renal impairment [Not Recovered/Not Resolved]
  - Drug hypersensitivity [Recovered/Resolved]

NARRATIVE: CASE EVENT DATE: 20121214
